FAERS Safety Report 25419332 (Version 1)
Quarter: 2025Q2

REPORT INFORMATION
  Report Type: Spontaneous
  Country: ES (occurrence: ES)
  Receive Date: 20250610
  Receipt Date: 20250610
  Transmission Date: 20250717
  Serious: Yes (Hospitalization)
  Sender: SHIONOGI
  Company Number: ES-AEMPS-1691803

PATIENT
  Sex: Male

DRUGS (3)
  1. CEFIDEROCOL [Suspect]
     Active Substance: CEFIDEROCOL
     Indication: Superinfection
     Route: 042
     Dates: start: 20250127, end: 20250213
  2. LINEZOLID [Suspect]
     Active Substance: LINEZOLID
     Indication: Superinfection
     Route: 042
     Dates: start: 20250127, end: 20250213
  3. GANCICLOVIR [Suspect]
     Active Substance: GANCICLOVIR
     Indication: Cytomegalovirus infection
     Route: 042
     Dates: start: 20250129, end: 20250213

REACTIONS (1)
  - Haemolytic anaemia [Recovered/Resolved]

NARRATIVE: CASE EVENT DATE: 20250205
